FAERS Safety Report 8991027 (Version 2)
Quarter: 2013Q1

REPORT INFORMATION
  Report Type: Spontaneous
  Country: US (occurrence: US)
  Receive Date: 20121231
  Receipt Date: 20130128
  Transmission Date: 20140127
  Serious: Yes (Other)
  Sender: FDA-Public Use
  Company Number: US-AMGEN-USASP2012082724

PATIENT
  Age: 50 Year
  Sex: Female
  Weight: 73.92 kg

DRUGS (2)
  1. XGEVA [Suspect]
     Indication: METASTASES TO BONE
     Dosage: 120 MG, QMO
     Route: 058
     Dates: start: 20120726, end: 20120820
  2. ZOMETA [Suspect]
     Indication: METASTASES TO BONE
     Dosage: UNK UNK, QMO
     Route: 042
     Dates: start: 20120206, end: 20120628

REACTIONS (2)
  - Gingival pain [Not Recovered/Not Resolved]
  - Osteonecrosis of jaw [Unknown]
